FAERS Safety Report 24572205 (Version 3)
Quarter: 2024Q4

REPORT INFORMATION
  Report Type: Spontaneous
  Country: JP (occurrence: JP)
  Receive Date: 20241101
  Receipt Date: 20241211
  Transmission Date: 20250115
  Serious: Yes (Hospitalization)
  Sender: PFIZER
  Company Number: JP-PFIZER INC-202400290328

PATIENT
  Age: 69 Year
  Sex: Male

DRUGS (1)
  1. ELREXFIO [Suspect]
     Active Substance: ELRANATAMAB-BCMM
     Indication: Plasma cell myeloma
     Dosage: 12 MG
     Dates: start: 20241015

REACTIONS (4)
  - Dysaesthesia [Not Recovered/Not Resolved]
  - Cytomegalovirus chorioretinitis [Not Recovered/Not Resolved]
  - Epigastric discomfort [Unknown]
  - Presyncope [Recovered/Resolved]

NARRATIVE: CASE EVENT DATE: 20241001
